FAERS Safety Report 14875005 (Version 1)
Quarter: 2018Q2

REPORT INFORMATION
  Report Type: Spontaneous
  Country: PT (occurrence: PT)
  Receive Date: 20180510
  Receipt Date: 20180510
  Transmission Date: 20180711
  Serious: Yes (Other)
  Sender: FDA-Public Use
  Company Number: PT-BAYER-2018-086709

PATIENT
  Age: 32 Year
  Sex: Female

DRUGS (4)
  1. ENOXAPARIN [Concomitant]
     Active Substance: ENOXAPARIN
  2. ACETYLSALICYLIC ACID({=100 MG) [Suspect]
     Active Substance: ASPIRIN
     Indication: BEHCET^S SYNDROME
  3. INFLIXIMAB [Concomitant]
     Active Substance: INFLIXIMAB
     Dosage: 2 CYCLES, UNK
  4. PREDNISOLONE. [Concomitant]
     Active Substance: PREDNISOLONE
     Dosage: 10 MG, UNK

REACTIONS (6)
  - Exposure during pregnancy [None]
  - Drug ineffective for unapproved indication [None]
  - Skin disorder [None]
  - Vulval disorder [None]
  - Off label use [None]
  - Product use in unapproved indication [None]
